FAERS Safety Report 6148234-2 (Version None)
Quarter: 2009Q2

REPORT INFORMATION
  Report Type: 
  Country: None (occurrence: None)
  Receive Date: 20090406
  Receipt Date: 20090327
  Transmission Date: 20091009
  Serious: Yes (Other)
  Sender: FDA-Public Use
  Company Number: CIP07001718

PATIENT
  Age: 69 Year
  Sex: Female
  Weight: 67.1 kg

DRUGS (2)
  1. ACTONEL [Suspect]
     Indication: OSTEOPENIA
     Dosage: 35 MG ONCE WEEKLY, ORAL
     Route: 048
     Dates: start: 20050901, end: 20070301
  2. VITAMINS [Concomitant]

REACTIONS (10)
  - DENTAL CARIES [None]
  - FAILURE OF IMPLANT [None]
  - GINGIVAL BLEEDING [None]
  - GINGIVAL PAIN [None]
  - LOOSE TOOTH [None]
  - OSTEONECROSIS [None]
  - PERIODONTAL INFECTION [None]
  - RESORPTION BONE INCREASED [None]
  - STEVENS-JOHNSON SYNDROME [None]
  - TOOTH EXTRACTION [None]
